FAERS Safety Report 15685051 (Version 11)
Quarter: 2022Q1

REPORT INFORMATION
  Report Type: Spontaneous
  Country: CA (occurrence: CA)
  Receive Date: 20181204
  Receipt Date: 20220112
  Transmission Date: 20220424
  Serious: Yes (Other)
  Sender: FDA-Public Use
  Company Number: CA-PFIZER INC-2018378709

PATIENT
  Age: 50 Year
  Sex: Female
  Weight: 73 kg

DRUGS (9)
  1. XELJANZ [Suspect]
     Active Substance: TOFACITINIB CITRATE
     Indication: Rheumatoid arthritis
     Dosage: 2.5 MG, 1X/DAY
     Route: 048
     Dates: start: 20180912, end: 2018
  2. XELJANZ [Suspect]
     Active Substance: TOFACITINIB CITRATE
     Dosage: 5 MG, 2X/DAY
     Route: 048
     Dates: start: 2018, end: 2019
  3. XELJANZ [Suspect]
     Active Substance: TOFACITINIB CITRATE
     Dosage: 5 MG, 2X/DAY
     Route: 048
     Dates: start: 2021, end: 2021
  4. FOLIC ACID [Concomitant]
     Active Substance: FOLIC ACID
     Dosage: DAILY
     Route: 048
  5. ADDERALL [Concomitant]
     Active Substance: AMPHETAMINE ASPARTATE\AMPHETAMINE SULFATE\DEXTROAMPHETAMINE SACCHARATE\DEXTROAMPHETAMINE SULFATE
     Dosage: UNK
  6. ADVIL [Concomitant]
     Active Substance: IBUPROFEN
     Dosage: AS NEEDED
  7. METHOTREXATE [Concomitant]
     Active Substance: METHOTREXATE
     Dosage: 15 MG, WEEKLY
     Route: 048
     Dates: start: 202008
  8. METHOTREXATE [Concomitant]
     Active Substance: METHOTREXATE
     Dosage: WEEKLYSTATUS: DISCONTINUED
     Route: 048
     Dates: start: 20151130
  9. PFIZER-BIONTECH COVID-19 VACCINE [Concomitant]
     Active Substance: TOZINAMERAN
     Dosage: UNK
     Dates: start: 20210426

REACTIONS (7)
  - Deafness [Unknown]
  - Drug ineffective [Unknown]
  - Weight increased [Unknown]
  - Synovitis [Unknown]
  - Low density lipoprotein increased [Unknown]
  - Joint swelling [Unknown]
  - Condition aggravated [Unknown]

NARRATIVE: CASE EVENT DATE: 20210310
